FAERS Safety Report 22257923 (Version 3)
Quarter: 2023Q2

REPORT INFORMATION
  Report Type: Report from Study
  Country: CA (occurrence: CA)
  Receive Date: 20230427
  Receipt Date: 20230512
  Transmission Date: 20230722
  Serious: Yes (Other)
  Sender: FDA-Public Use
  Company Number: CA-JNJFOC-20230457644

PATIENT
  Age: 16 Year
  Sex: Male
  Weight: 86 kg

DRUGS (1)
  1. REMICADE [Suspect]
     Active Substance: INFLIXIMAB
     Indication: Colitis ulcerative
     Dosage: THE PATIENT HAD RECEIVED REMICADE INFUSION ON 02-AUG-2016. ON 25-APR-2023, THE PATIENT COMPLETED HE
     Route: 042
     Dates: start: 20160614

REACTIONS (3)
  - Haematochezia [Not Recovered/Not Resolved]
  - Gastrointestinal inflammation [Unknown]
  - Off label use [Unknown]

NARRATIVE: CASE EVENT DATE: 20160802
